FAERS Safety Report 14826531 (Version 1)
Quarter: 2018Q2

REPORT INFORMATION
  Report Type: Spontaneous
  Country: US (occurrence: US)
  Receive Date: 20180404
  Receipt Date: 20180404
  Transmission Date: 20180711
  Serious: Yes (Other)
  Sender: FDA-Public Use
  Company Number: None

PATIENT
  Age: 15 Year
  Sex: Male
  Weight: 76.5 kg

DRUGS (3)
  1. RERUN A .08% [Concomitant]
  2. DOXYCYCLINE HYCLATE 100MG [Suspect]
     Active Substance: DOXYCYCLINE HYCLATE
     Indication: ACNE
     Dosage: ?          QUANTITY:1 TABLET(S);?
     Route: 048
     Dates: start: 20180315, end: 20180403
  3. TAZORAC .05% [Concomitant]

REACTIONS (3)
  - Agitation [None]
  - Social avoidant behaviour [None]
  - Depression [None]

NARRATIVE: CASE EVENT DATE: 20180404
